FAERS Safety Report 24548428 (Version 3)
Quarter: 2024Q4

REPORT INFORMATION
  Report Type: Spontaneous
  Country: BE (occurrence: BE)
  Receive Date: 20241025
  Receipt Date: 20241205
  Transmission Date: 20250114
  Serious: Yes (Other)
  Sender: EMD SERONO INC
  Company Number: BE-Merck Healthcare KGaA-2024055966

PATIENT
  Age: 22 Year
  Sex: Male

DRUGS (2)
  1. MAVENCLAD [Suspect]
     Active Substance: CLADRIBINE
     Indication: Multiple sclerosis
     Dosage: FIRST MONTH THERAPY ?START DATE: SEPTEMBER_(UNSPECIFIED YEAR).
  2. MAVENCLAD [Suspect]
     Active Substance: CLADRIBINE
     Dosage: SECOND MONTH THERAPY ?START DATE: OCTOBER-(UNSPECIFIED YEAR).

REACTIONS (3)
  - Viral pericarditis [Recovering/Resolving]
  - Immunosuppression [Recovering/Resolving]
  - Lymphocyte count decreased [Recovering/Resolving]
